FAERS Safety Report 4884446-3 (Version None)
Quarter: 2006Q1

REPORT INFORMATION
  Report Type: 
  Country: None (occurrence: None)
  Receive Date: 20060119
  Receipt Date: 20060111
  Transmission Date: 20060701
  Serious: Yes (Hospitalization)
  Sender: FDA-Public Use
  Company Number: US-KINGPHARMUSA00001-K200600031

PATIENT
  Sex: Female

DRUGS (6)
  1. ALTACE [Suspect]
     Dosage: 10 MG, BID
     Route: 048
     Dates: start: 20050101
  2. ALTACE [Suspect]
     Dosage: 10 MG, QD
     Route: 048
     Dates: start: 20060101
  3. DIOVAN [Concomitant]
  4. NORVASC [Concomitant]
  5. SINGULAIR [Concomitant]
  6. AVALIDE [Suspect]

REACTIONS (2)
  - BURNING SENSATION [None]
  - ELECTROLYTE IMBALANCE [None]
